FAERS Safety Report 6010700-8 (Version None)
Quarter: 2008Q4

REPORT INFORMATION
  Report Type: 
  Country: None (occurrence: None)
  Receive Date: 20081218
  Receipt Date: 20080918
  Transmission Date: 20090506
  Serious: Yes (Other)
  Sender: FDA-Public Use
  Company Number: FR-JNJFOC-20081202683

PATIENT
  Age: 85 Year
  Sex: Female

DRUGS (6)
  1. ECONAZOLE NITRATE [Suspect]
     Indication: DRUG USE FOR UNKNOWN INDICATION
     Route: 003
  2. ECONAZOLE NITRATE [Suspect]
     Route: 003
  3. ACENOCOUMAROL [Interacting]
     Indication: DRUG USE FOR UNKNOWN INDICATION
     Route: 065
  4. PRISTINAMYCIN [Concomitant]
     Route: 065
  5. FUROSEMIDE [Concomitant]
     Route: 065
  6. OMEPRAZOLE [Concomitant]
     Route: 065

REACTIONS (2)
  - DRUG INTERACTION [None]
  - INTERNATIONAL NORMALISED RATIO INCREASED [None]
